FAERS Safety Report 5390498-7 (Version None)
Quarter: 2007Q3

REPORT INFORMATION
  Report Type: 
  Country: None (occurrence: None)
  Receive Date: 20070718
  Receipt Date: 20070706
  Transmission Date: 20080115
  Serious: Yes (Other)
  Sender: FDA-Public Use
  Company Number: US-PFIZER INC-2007055520

PATIENT
  Sex: Male
  Weight: 245 kg

DRUGS (8)
  1. ZYVOX [Suspect]
     Indication: STAPHYLOCOCCAL INFECTION
     Dates: start: 20060503, end: 20060601
  2. CAPTOPRIL [Concomitant]
     Indication: HYPERTENSION
  3. LASIX [Concomitant]
     Dosage: DAILY DOSE:80MG
  4. AMITRIPTYLINE HCL [Concomitant]
     Dosage: DAILY DOSE:10MG
  5. GLUCOPHAGE [Concomitant]
  6. BYETTA [Concomitant]
  7. CARDURA [Concomitant]
  8. ANTIBIOTICS [Concomitant]
     Route: 042

REACTIONS (8)
  - AGEUSIA [None]
  - DECREASED APPETITE [None]
  - DIARRHOEA [None]
  - DRUG DOSE OMISSION [None]
  - DRUG INEFFECTIVE [None]
  - FUNGAL INFECTION [None]
  - VOMITING [None]
  - WEIGHT DECREASED [None]
